FAERS Safety Report 8932858 (Version 1)
Quarter: 2012Q4

REPORT INFORMATION
  Report Type: 
  Country: US (occurrence: US)
  Receive Date: 20121129
  Receipt Date: 20121129
  Transmission Date: 20130627
  Serious: No
  Sender: FDA-Public Use
  Company Number: US-BAYER-2012-124221

PATIENT
  Age: 23 Year
  Sex: Female

DRUGS (2)
  1. SAFYRAL [Suspect]
     Indication: CONTRACEPTION
     Dosage: 1 DF, QD
     Dates: start: 201210
  2. SAFYRAL [Suspect]
     Indication: MENSTRUAL CYCLE MANAGEMENT

REACTIONS (2)
  - Menorrhagia [Not Recovered/Not Resolved]
  - Expired drug administered [None]
